FAERS Safety Report 5323657-X (Version None)
Quarter: 2007Q2

REPORT INFORMATION
  Report Type: 
  Country: None (occurrence: None)
  Receive Date: 20070507
  Receipt Date: 20070425
  Transmission Date: 20071010
  Serious: Yes (Hospitalization)
  Sender: FDA-Public Use
  Company Number: 230014M07DEU

PATIENT
  Age: 25 Year
  Sex: Male

DRUGS (2)
  1. REBIF [Suspect]
     Indication: MULTIPLE SCLEROSIS
     Dosage: 44 MCG, 1 IN 1 DAYS, SUBCUTANEOUS
     Route: 058
     Dates: start: 20070301, end: 20070411
  2. RISPERDAL [Concomitant]

REACTIONS (5)
  - INJECTION SITE INFLAMMATION [None]
  - INJECTION SITE MASS [None]
  - INJECTION SITE NECROSIS [None]
  - POST PROCEDURAL COMPLICATION [None]
  - SEROMA [None]
